FAERS Safety Report 12909985 (Version 1)
Quarter: 2016Q4

REPORT INFORMATION
  Report Type: Report from Study
  Country: JP (occurrence: JP)
  Receive Date: 20161104
  Receipt Date: 20161104
  Transmission Date: 20170207
  Serious: Yes (Other)
  Sender: FDA-Public Use
  Company Number: JP-ROCHE-1072638

PATIENT

DRUGS (2)
  1. TOCILIZUMAB [Suspect]
     Active Substance: TOCILIZUMAB
     Indication: RHEUMATOID ARTHRITIS
     Route: 042
  2. METHOTREXATE. [Concomitant]
     Active Substance: METHOTREXATE

REACTIONS (13)
  - Anaphylactic reaction [Unknown]
  - Skin ulcer [Unknown]
  - Leukopenia [Unknown]
  - Pneumonia [Unknown]
  - Myocardial infarction [Unknown]
  - Cardiac failure [Unknown]
  - Interstitial lung disease [Unknown]
  - Cellulitis [Unknown]
  - Drug ineffective [Unknown]
  - Cerebral haemorrhage [Unknown]
  - Hepatic enzyme increased [Unknown]
  - Chest pain [Unknown]
  - Breast cancer [Unknown]
